FAERS Safety Report 6869350-3 (Version None)
Quarter: 2010Q3

REPORT INFORMATION
  Report Type: 
  Country: None (occurrence: None)
  Receive Date: 20100722
  Receipt Date: 20100722
  Transmission Date: 20110219
  Serious: No
  Sender: FDA-Public Use
  Company Number: None

PATIENT
  Sex: Female
  Weight: 87.9978 kg

DRUGS (1)
  1. CLEAN + CLEAR FACIAL CREAM [Suspect]
     Indication: ACNE
     Dosage: APPLIED ONCE TOPICAL
     Route: 061

REACTIONS (1)
  - FACE OEDEMA [None]
